FAERS Safety Report 22680972 (Version 4)
Quarter: 2023Q4

REPORT INFORMATION
  Report Type: Report from Study
  Country: US (occurrence: US)
  Receive Date: 20230707
  Receipt Date: 20231117
  Transmission Date: 20240109
  Serious: No
  Sender: FDA-Public Use
  Company Number: US-002147023-NVSC2023US152220

PATIENT
  Sex: Female

DRUGS (1)
  1. KISQALI [Suspect]
     Active Substance: RIBOCICLIB
     Indication: Product used for unknown indication
     Dosage: UNK
     Route: 065

REACTIONS (7)
  - Oral pain [Unknown]
  - Onychoclasis [Unknown]
  - Chills [Unknown]
  - Pyrexia [Unknown]
  - Fatigue [Unknown]
  - White blood cell count decreased [Unknown]
  - Rash [Recovering/Resolving]
